FAERS Safety Report 24251750 (Version 1)
Quarter: 2024Q3

REPORT INFORMATION
  Report Type: Spontaneous
  Country: US (occurrence: US)
  Receive Date: 20240827
  Receipt Date: 20240827
  Transmission Date: 20241017
  Serious: No
  Sender: ROCHE
  Company Number: US-ROCHE-10000064953

PATIENT
  Sex: Female

DRUGS (2)
  1. ROZLYTREK [Suspect]
     Active Substance: ENTRECTINIB
     Indication: Lung neoplasm malignant
     Route: 048
     Dates: start: 202406
  2. ROZLYTREK [Suspect]
     Active Substance: ENTRECTINIB
     Dosage: 2 CAPSULES DAILY
     Route: 048

REACTIONS (1)
  - Hepatic enzyme increased [Recovering/Resolving]
